FAERS Safety Report 7900958 (Version 4)
Quarter: 2013Q4

REPORT INFORMATION
  Report Type: Report from Study
  Country: DE (occurrence: DE)
  Receive Date: 20110415
  Receipt Date: 20131117
  Transmission Date: 20140711
  Serious: Yes (Other)
  Sender: FDA-Public Use
  Company Number: DE-ROCHE-771459

PATIENT
  Age: 68 Year
  Sex: Female
  Weight: 99 kg

DRUGS (9)
  1. TOCILIZUMAB [Suspect]
     Indication: RHEUMATOID ARTHRITIS
     Route: 042
     Dates: start: 20110304, end: 20110304
  2. METHYLPREDNISOLON [Concomitant]
     Indication: RHEUMATOID ARTHRITIS
     Route: 065
  3. LANSOPRAZOLE [Concomitant]
     Indication: RESTLESS LEGS SYNDROME
     Route: 048
  4. SINGULAIR [Concomitant]
     Indication: ASTHMA
     Route: 048
  5. SIFROL [Concomitant]
     Indication: RESTLESS LEGS SYNDROME
     Dosage: 1-1-2
     Route: 048
  6. THEOPHYLLIN [Concomitant]
     Indication: ASTHMA
     Route: 048
  7. COAPROVEL [Concomitant]
     Indication: HYPERTENSION
     Route: 048
  8. FORMATRIS [Concomitant]
     Indication: ASTHMA
     Route: 065
  9. VENTOLAIR [Concomitant]
     Indication: ASTHMA
     Route: 065

REACTIONS (2)
  - Asthma [Recovered/Resolved]
  - Bronchopneumonia [Recovered/Resolved]
